FAERS Safety Report 16228879 (Version 2)
Quarter: 2019Q2

REPORT INFORMATION
  Report Type: Spontaneous
  Country: TW (occurrence: TW)
  Receive Date: 20190423
  Receipt Date: 20190501
  Transmission Date: 20190711
  Serious: Yes (Other)
  Sender: FDA-Public Use
  Company Number: TW-PFIZER INC-2019167763

PATIENT
  Age: 45 Year
  Sex: Female

DRUGS (5)
  1. LYRICA [Suspect]
     Active Substance: PREGABALIN
     Indication: FIBROMYALGIA
     Dosage: 75 MG, 2X/DAY
     Route: 048
  2. LYRICA [Suspect]
     Active Substance: PREGABALIN
     Dosage: 75 MG, 1X/DAY IN THE EVENING
     Route: 048
  3. MORPHINE [Concomitant]
     Active Substance: MORPHINE
     Route: 048
  4. LYRICA [Suspect]
     Active Substance: PREGABALIN
     Dosage: 25 UNK, BID
  5. SLEEPING [TRIAZOLAM] [Concomitant]
     Route: 048

REACTIONS (10)
  - Menstrual disorder [Unknown]
  - Blood oestrogen decreased [Unknown]
  - Discomfort [Unknown]
  - Impaired work ability [Unknown]
  - Night sweats [Unknown]
  - Product prescribing error [Unknown]
  - Pruritus [Unknown]
  - Alopecia [Not Recovered/Not Resolved]
  - Intentional product use issue [Unknown]
  - Insomnia [Not Recovered/Not Resolved]
